FAERS Safety Report 21226156 (Version 1)
Quarter: 2022Q3

REPORT INFORMATION
  Report Type: Spontaneous
  Country: US (occurrence: US)
  Receive Date: 20220818
  Receipt Date: 20220818
  Transmission Date: 20221027
  Serious: Yes (Other)
  Sender: FDA-Public Use
  Company Number: US-ALEMBIC PHARMACUETICALS LIMITED-2021SCAL000315

PATIENT

DRUGS (1)
  1. DESVENLAFAXINE SUCCINATE [Suspect]
     Active Substance: DESVENLAFAXINE SUCCINATE
     Indication: Cerebral disorder
     Dosage: 50 MG
     Route: 065
     Dates: start: 202101, end: 20210701

REACTIONS (10)
  - Suicidal ideation [Unknown]
  - Hypersomnia [Unknown]
  - Gluten sensitivity [Recovering/Resolving]
  - Drug ineffective [Unknown]
  - Product substitution issue [Unknown]
  - Urticaria [Recovering/Resolving]
  - Heart rate increased [Recovering/Resolving]
  - Blood pressure increased [Recovering/Resolving]
  - Anxiety [Recovering/Resolving]
  - Panic attack [Recovering/Resolving]
